FAERS Safety Report 5136079-1 (Version None)
Quarter: 2006Q4

REPORT INFORMATION
  Report Type: 
  Country: None (occurrence: None)
  Receive Date: 20061027
  Receipt Date: 20060719
  Transmission Date: 20070319
  Serious: Yes (Hospitalization)
  Sender: FDA-Public Use
  Company Number: 2006UW14681

PATIENT
  Age: 44 Year
  Sex: Male

DRUGS (2)
  1. BUDESONIDE [Suspect]
     Indication: MALIGNANT MELANOMA
     Route: 048
     Dates: start: 20060530, end: 20060620
  2. IPILIMUMAB [Suspect]
     Indication: MALIGNANT MELANOMA
     Route: 042
     Dates: start: 20060620, end: 20060620

REACTIONS (7)
  - BLOOD CHLORIDE DECREASED [None]
  - BLOOD GLUCOSE INCREASED [None]
  - BLOOD POTASSIUM DECREASED [None]
  - BLOOD SODIUM DECREASED [None]
  - COLITIS [None]
  - DIARRHOEA HAEMORRHAGIC [None]
  - LARGE INTESTINAL ULCER [None]
